FAERS Safety Report 21800175 (Version 1)
Quarter: 2022Q4

REPORT INFORMATION
  Report Type: Spontaneous
  Country: US (occurrence: None)
  Receive Date: 20221229
  Receipt Date: 20221229
  Transmission Date: 20230112
  Serious: Yes (Life-Threatening, Disabling)
  Sender: FDA-Public Use
  Company Number: None

PATIENT
  Age: 52 Year
  Sex: Male
  Weight: 122.47 kg

DRUGS (1)
  1. TRILEPTAL [Suspect]
     Active Substance: OXCARBAZEPINE
     Indication: Product used for unknown indication
     Dosage: FREQUENCY : EVERY THREE WEEKS;?
     Dates: start: 20201111

REACTIONS (18)
  - Wrong product administered [None]
  - Mental disorder [None]
  - COVID-19 [None]
  - Gait disturbance [None]
  - Depression [None]
  - Anxiety [None]
  - Delusion [None]
  - Urinary tract infection [None]
  - Multi-organ disorder [None]
  - Blood urine present [None]
  - Renal disorder [None]
  - Emotional distress [None]
  - Asthenia [None]
  - Dizziness [None]
  - Balance disorder [None]
  - Sensory disturbance [None]
  - Erectile dysfunction [None]
  - Hydronephrosis [None]

NARRATIVE: CASE EVENT DATE: 20201211
